FAERS Safety Report 5981495-9 (Version None)
Quarter: 2008Q4

REPORT INFORMATION
  Report Type: 
  Country: None (occurrence: None)
  Receive Date: 20081202
  Receipt Date: 20081118
  Transmission Date: 20090506
  Serious: Yes (Hospitalization)
  Sender: FDA-Public Use
  Company Number: CLOF-1000328

PATIENT
  Age: 9 Year
  Sex: Male
  Weight: 25.2 kg

DRUGS (9)
  1. CLOLAR [Suspect]
     Indication: ACUTE MYELOID LEUKAEMIA
     Dosage: 19.8 MG, QDX3, INTRAVENOUS
     Route: 042
     Dates: start: 20081022, end: 20081024
  2. CYCLOPHOSPHAMIDE [Suspect]
     Indication: ACUTE MYELOID LEUKAEMIA
     Dosage: 198 MG, QD, INTRAVENOUS; 396 MG, QD, INTRAVENOUS; 396 MG, QDX3, INTRAVENOUS
     Route: 042
     Dates: start: 20081021, end: 20081022
  3. CYCLOPHOSPHAMIDE [Suspect]
     Indication: ACUTE MYELOID LEUKAEMIA
     Dosage: 198 MG, QD, INTRAVENOUS; 396 MG, QD, INTRAVENOUS; 396 MG, QDX3, INTRAVENOUS
     Route: 042
     Dates: start: 20081023, end: 20081024
  4. CYCLOPHOSPHAMIDE [Suspect]
     Indication: ACUTE MYELOID LEUKAEMIA
     Dosage: 198 MG, QD, INTRAVENOUS; 396 MG, QD, INTRAVENOUS; 396 MG, QDX3, INTRAVENOUS
     Route: 042
     Dates: start: 20081029, end: 20081031
  5. ONDANSETRON HCL [Concomitant]
  6. ACETAMINOPHEN [Concomitant]
  7. ALLOPURINOL [Concomitant]
  8. DIPHENHYDRAMINE HCL [Concomitant]
  9. HYDROCORTISONE [Concomitant]

REACTIONS (12)
  - ABDOMINAL PAIN [None]
  - DISEASE RECURRENCE [None]
  - DRUG TOXICITY [None]
  - HAEMOGLOBIN DECREASED [None]
  - HEADACHE [None]
  - LEUKOPENIA [None]
  - LYMPHOPENIA [None]
  - NEUTROPENIA [None]
  - PAIN IN EXTREMITY [None]
  - SENSATION OF FOREIGN BODY [None]
  - THROMBOCYTOPENIA [None]
  - VOMITING [None]
